FAERS Safety Report 8230346-0 (Version None)
Quarter: 2012Q1

REPORT INFORMATION
  Report Type: 
  Country: None (occurrence: None)
  Receive Date: 20120323
  Receipt Date: 20120316
  Transmission Date: 20120608
  Serious: Yes (Hospitalization)
  Sender: FDA-Public Use
  Company Number: FR-US-EMD SERONO, INC.-7116263

PATIENT
  Sex: Female

DRUGS (1)
  1. SAIZEN [Suspect]
     Indication: SMALL FOR DATES BABY
     Route: 058
     Dates: start: 20120214

REACTIONS (3)
  - VOMITING [None]
  - VIRAL INFECTION [None]
  - ABDOMINAL PAIN [None]
